FAERS Safety Report 23921103 (Version 1)
Quarter: 2024Q2

REPORT INFORMATION
  Report Type: Spontaneous
  Country: US (occurrence: None)
  Receive Date: 20240530
  Receipt Date: 20240530
  Transmission Date: 20240715
  Serious: Yes (Hospitalization)
  Sender: FDA-Public Use
  Company Number: None

PATIENT
  Age: 72 Year
  Sex: Male
  Weight: 60 kg

DRUGS (1)
  1. PSEUDOEPHEDRINE HYDROCHLORIDE [Suspect]
     Active Substance: PSEUDOEPHEDRINE HYDROCHLORIDE
     Indication: Nasal congestion
     Dosage: 30 MG QID PO
     Route: 048
     Dates: start: 20240116, end: 20240206

REACTIONS (8)
  - Atrial fibrillation [None]
  - Dyspnoea [None]
  - Exercise tolerance decreased [None]
  - Heart rate increased [None]
  - Upper respiratory tract irritation [None]
  - Bundle branch block right [None]
  - Electrocardiogram ST segment abnormal [None]
  - QRS axis abnormal [None]

NARRATIVE: CASE EVENT DATE: 20240206
